FAERS Safety Report 9331995 (Version 2)
Quarter: 2013Q3

REPORT INFORMATION
  Report Type: Spontaneous
  Country: AT (occurrence: None)
  Receive Date: 20130603
  Receipt Date: 20130703
  Transmission Date: 20140515
  Serious: Yes (Hospitalization, Other)
  Sender: FDA-Public Use
  Company Number: TPG2013A00295

PATIENT
  Age: 83 Year
  Sex: Male

DRUGS (5)
  1. ACTOS [Suspect]
     Indication: TYPE 2 DIABETES MELLITUS
     Route: 048
     Dates: start: 2009, end: 201303
  2. METFORMIN (METFORMIN) [Concomitant]
  3. HYPREN (RAMIPRIL) [Concomitant]
  4. CARVEDIOL (CARVEDILOL) [Concomitant]
  5. DIURETIC [Concomitant]
     Route: 048

REACTIONS (8)
  - Bladder cancer [None]
  - Hydronephrosis [None]
  - Pulmonary embolism [None]
  - Urinary tract obstruction [None]
  - Haemoglobin decreased [None]
  - Haematocrit decreased [None]
  - Blood uric acid increased [None]
  - Tumour necrosis [None]
